FAERS Safety Report 4624429-1 (Version None)
Quarter: 2005Q1

REPORT INFORMATION
  Report Type: 
  Country: None (occurrence: None)
  Receive Date: 20050330
  Receipt Date: 20050330
  Transmission Date: 20050727
  Serious: Yes (Hospitalization)
  Sender: FDA-Public Use
  Company Number: None

PATIENT
  Age: 64 Year
  Sex: Female
  Weight: 77.5651 kg

DRUGS (19)
  1. AVASTIN [Suspect]
     Indication: COLORECTAL CANCER METASTATIC
     Dosage: 366 MG IV Q 2 WKS
     Route: 042
     Dates: start: 20041201
  2. AVASTIN [Suspect]
     Indication: COLORECTAL CANCER METASTATIC
     Dosage: 366 MG IV Q 2 WKS
     Route: 042
     Dates: start: 20041215
  3. AVASTIN [Suspect]
     Indication: COLORECTAL CANCER METASTATIC
     Dosage: 366 MG IV Q 2 WKS
     Route: 042
     Dates: start: 20050105
  4. AVASTIN [Suspect]
     Indication: COLORECTAL CANCER METASTATIC
     Dosage: 366 MG IV Q 2 WKS
     Route: 042
     Dates: start: 20050119
  5. AVASTIN [Suspect]
     Indication: COLORECTAL CANCER METASTATIC
     Dosage: 366 MG IV Q 2 WKS
     Route: 042
     Dates: start: 20050202
  6. AVASTIN [Suspect]
     Indication: COLORECTAL CANCER METASTATIC
     Dosage: 366 MG IV Q 2 WKS
     Route: 042
     Dates: start: 20050216
  7. AVASTIN [Suspect]
     Indication: COLORECTAL CANCER METASTATIC
     Dosage: 366 MG IV Q 2 WKS
     Route: 042
     Dates: start: 20050302
  8. DILAUDID [Concomitant]
  9. COUMADIN [Concomitant]
  10. MAGIC MOUTHWASH [Concomitant]
  11. MAG OX [Concomitant]
  12. COMPAZINE [Concomitant]
  13. CHROMAGEN FORTE [Concomitant]
  14. FLONASE [Concomitant]
  15. PROTONIX [Concomitant]
  16. TOPROL-XL [Concomitant]
  17. LEXAPRO [Concomitant]
  18. POTASSIUM CHLORIDE [Concomitant]
  19. CYCLOBENZAPRINE HCL [Concomitant]

REACTIONS (3)
  - CONFUSIONAL STATE [None]
  - MENTAL STATUS CHANGES [None]
  - PYREXIA [None]
